FAERS Safety Report 16241473 (Version 2)
Quarter: 2019Q2

REPORT INFORMATION
  Report Type: Spontaneous
  Country: US (occurrence: US)
  Receive Date: 20190426
  Receipt Date: 20190509
  Transmission Date: 20190711
  Serious: No
  Sender: FDA-Public Use
  Company Number: US-JNJFOC-20190403053

PATIENT
  Sex: Female
  Weight: 56.7 kg

DRUGS (1)
  1. CHILDRENS TYLENOL [Suspect]
     Active Substance: ACETAMINOPHEN
     Indication: VIRAL INFECTION
     Route: 048

REACTIONS (2)
  - Product administered to patient of inappropriate age [Unknown]
  - Product use in unapproved indication [Unknown]
